FAERS Safety Report 14808974 (Version 2)
Quarter: 2018Q2

REPORT INFORMATION
  Report Type: Spontaneous
  Country: US (occurrence: US)
  Receive Date: 20180425
  Receipt Date: 20180605
  Transmission Date: 20180711
  Serious: Yes (Other)
  Sender: FDA-Public Use
  Company Number: US-ENDO PHARMACEUTICALS INC-2018-026975

PATIENT
  Sex: Male

DRUGS (3)
  1. OXYCONTIN [Concomitant]
     Active Substance: OXYCODONE HYDROCHLORIDE
     Indication: PRODUCT USED FOR UNKNOWN INDICATION
     Dosage: UNK UNKNOWN, UNKNOWN
     Route: 065
  2. CIMETIDINE [Concomitant]
     Active Substance: CIMETIDINE
     Indication: PRODUCT USED FOR UNKNOWN INDICATION
     Dosage: UNK UNKNOWN, UNKNOWN
     Route: 065
  3. OXYCODONE [Suspect]
     Active Substance: OXYCODONE
     Indication: NEURALGIA
     Dosage: 15 MG, QID (ONE EVERY 6 HOURS)
     Route: 048
     Dates: start: 201711

REACTIONS (8)
  - Chest pain [Unknown]
  - Seizure [Unknown]
  - Feeling abnormal [Unknown]
  - General physical health deterioration [Unknown]
  - Blood pressure increased [Unknown]
  - Malaise [Unknown]
  - Inadequate analgesia [Unknown]
  - Anxiety [Unknown]
